FAERS Safety Report 22207805 (Version 1)
Quarter: 2023Q2

REPORT INFORMATION
  Report Type: Spontaneous
  Country: US (occurrence: US)
  Receive Date: 20230413
  Receipt Date: 20230413
  Transmission Date: 20230722
  Serious: No
  Sender: FDA-Public Use
  Company Number: US-JNJFOC-20190909475

PATIENT
  Sex: Female
  Weight: 49 kg

DRUGS (1)
  1. IMODIUM A-D [Suspect]
     Active Substance: LOPERAMIDE HYDROCHLORIDE
     Indication: Diarrhoea
     Dosage: TWO AFTER FIRST LOOSE STOOL THEN ONE AFTER EACH LOOSE STOOL ONE DAY WHEN NECESSARY
     Route: 048
     Dates: end: 20190905

REACTIONS (2)
  - Dysphagia [Recovered/Resolved]
  - Product packaging issue [Unknown]
